FAERS Safety Report 8122568-4 (Version None)
Quarter: 2012Q1

REPORT INFORMATION
  Report Type: 
  Country: None (occurrence: None)
  Receive Date: 20120208
  Receipt Date: 20120208
  Transmission Date: 20120608
  Serious: Yes (Other)
  Sender: FDA-Public Use
  Company Number: CH-ROCHE-1034298

PATIENT
  Sex: Female
  Weight: 65 kg

DRUGS (2)
  1. FOSAMAX [Concomitant]
     Dates: start: 20070101, end: 20100101
  2. BONIVA [Suspect]
     Indication: PRODUCT USED FOR UNKNOWN INDICATION
     Route: 042
     Dates: start: 20100109

REACTIONS (1)
  - THROMBOCYTOPENIA [None]
